FAERS Safety Report 4560231-7 (Version None)
Quarter: 2005Q1

REPORT INFORMATION
  Report Type: 
  Country: None (occurrence: None)
  Receive Date: 20050120
  Receipt Date: 20050120
  Transmission Date: 20050727
  Serious: Yes (Other)
  Sender: FDA-Public Use
  Company Number: None

PATIENT
  Age: 71 Year
  Sex: Female
  Weight: 78.0187 kg

DRUGS (4)
  1. NEURONTIN [Suspect]
     Indication: NEUROPATHY PERIPHERAL
     Dosage: ORAL
     Route: 048
     Dates: start: 19990827, end: 19991029
  2. PANCREASE CAPS [Concomitant]
  3. XANAX [Concomitant]
  4. EXTRA STRENGTH TYLENOL CAP [Concomitant]

REACTIONS (2)
  - ABNORMAL FAECES [None]
  - ATRIAL FIBRILLATION [None]
